FAERS Safety Report 6506379-9 (Version None)
Quarter: 2009Q4

REPORT INFORMATION
  Report Type: 
  Country: None (occurrence: None)
  Receive Date: 20091218
  Receipt Date: 20091214
  Transmission Date: 20100525
  Serious: Yes (Hospitalization, Disabling)
  Sender: FDA-Public Use
  Company Number: PR-MERCK-0805USA02801

PATIENT
  Age: 56 Year
  Sex: Female

DRUGS (11)
  1. FOSAMAX [Suspect]
     Indication: OSTEOPOROSIS
     Route: 048
     Dates: start: 20070101, end: 20080201
  2. KEFLEX [Concomitant]
     Route: 065
     Dates: start: 20070101
  3. ATENOLOL [Concomitant]
     Route: 065
     Dates: start: 20070101
  4. HYDROCHLOROTHIAZIDE [Concomitant]
     Route: 065
     Dates: start: 20070101
  5. NABUMETONE [Concomitant]
     Route: 065
     Dates: start: 20070101
  6. TEMAZEPAM [Concomitant]
     Route: 065
     Dates: start: 20070101
  7. AMLODIPINE [Concomitant]
     Route: 065
     Dates: start: 20070101
  8. KETOROLAC TROMETHAMINE [Concomitant]
     Route: 065
     Dates: start: 20070101
  9. ENALAPRIL MALEATE [Concomitant]
     Route: 065
     Dates: start: 20070101
  10. [THERAPY UNSPECIFIED] [Concomitant]
     Route: 065
     Dates: start: 20070101
  11. [THERAPY UNSPECIFIED] [Concomitant]
     Route: 065
     Dates: start: 20070101

REACTIONS (16)
  - ABSCESS [None]
  - ADVERSE EVENT [None]
  - ANXIETY [None]
  - BONE DENSITY DECREASED [None]
  - DEPRESSION [None]
  - INFECTION [None]
  - INSOMNIA [None]
  - LOOSE TOOTH [None]
  - MIGRAINE [None]
  - MUSCLE SPASMS [None]
  - OEDEMA PERIPHERAL [None]
  - OSTEONECROSIS [None]
  - OSTEOPENIA [None]
  - PERIODONTITIS [None]
  - TOOTH ABSCESS [None]
  - TOOTH FRACTURE [None]
